FAERS Safety Report 12544273 (Version 1)
Quarter: 2016Q3

REPORT INFORMATION
  Report Type: Spontaneous
  Country: AU (occurrence: AU)
  Receive Date: 20160711
  Receipt Date: 20160711
  Transmission Date: 20161109
  Serious: Yes (Life-Threatening)
  Sender: FDA-Public Use
  Company Number: AU-ACTAVIS PTY LTD-2016-14762

PATIENT
  Age: 26 Year
  Sex: Male

DRUGS (8)
  1. TOBRAMYCIN (UNKNOWN) [Suspect]
     Active Substance: TOBRAMYCIN
     Indication: RESPIRATORY TRACT INFECTION
     Dosage: 560 MG, QHS
     Route: 042
  2. AZITHROMYCIN (UNKNOWN) [Suspect]
     Active Substance: AZITHROMYCIN ANHYDROUS
     Indication: RESPIRATORY TRACT INFECTION
     Dosage: 500 MG, 3/WEEK
     Route: 048
  3. IMIPENEM [Suspect]
     Active Substance: IMIPENEM
     Indication: RESPIRATORY TRACT INFECTION
     Dosage: 1 G, Q6H
     Route: 042
     Dates: start: 2013
  4. VANCOMYCIN HYDROCHLORIDE. [Suspect]
     Active Substance: VANCOMYCIN HYDROCHLORIDE
     Indication: RESPIRATORY TRACT INFECTION
     Dosage: 1.5 G, Q8H
     Route: 065
  5. SULFAMETHOXAZOLE AND TRIMETHOPRIM [Suspect]
     Active Substance: SULFAMETHOXAZOLE\TRIMETHOPRIM
     Indication: RESPIRATORY TRACT INFECTION
     Dosage: 1600/320 MG, 6 HOURLY
     Route: 042
     Dates: start: 2013
  6. PIPERACILLIN AND TAZOBACTAM [Suspect]
     Active Substance: PIPERACILLIN SODIUM\TAZOBACTAM SODIUM
     Indication: RESPIRATORY TRACT INFECTION
     Dosage: 12 G OF PIPERACILLIN COMPONENT/24 H
     Route: 041
  7. CASPOFUNGIN (UNKNOWN) [Suspect]
     Active Substance: CASPOFUNGIN
     Dosage: 50 MG, DAILY
     Route: 065
  8. CASPOFUNGIN (UNKNOWN) [Suspect]
     Active Substance: CASPOFUNGIN
     Indication: RESPIRATORY TRACT INFECTION
     Dosage: 70 MG, LOADING DOSE
     Route: 065

REACTIONS (6)
  - Respiratory failure [None]
  - Acute respiratory distress syndrome [None]
  - Treatment failure [Unknown]
  - Pleural effusion [None]
  - Pneumothorax [None]
  - Pathogen resistance [None]
